FAERS Safety Report 6740262-9 (Version None)
Quarter: 2010Q2

REPORT INFORMATION
  Report Type: 
  Country: None (occurrence: None)
  Receive Date: 20100525
  Receipt Date: 20100511
  Transmission Date: 20101027
  Serious: Yes (Hospitalization)
  Sender: FDA-Public Use
  Company Number: ES-MERCK-1005ESP00029

PATIENT
  Sex: Female

DRUGS (2)
  1. EMEND [Suspect]
     Indication: PROPHYLAXIS OF NAUSEA AND VOMITING
     Route: 065
  2. ANTINEOPLASTIC (UNSPECIFIED) [Concomitant]
     Indication: BREAST CANCER
     Route: 065

REACTIONS (3)
  - DIZZINESS [None]
  - PARAESTHESIA [None]
  - VERTIGO [None]
